FAERS Safety Report 6545515-5 (Version None)
Quarter: 2010Q1

REPORT INFORMATION
  Report Type: 
  Country: None (occurrence: None)
  Receive Date: 20100119
  Receipt Date: 20100104
  Transmission Date: 20100710
  Serious: Yes (Hospitalization)
  Sender: FDA-Public Use
  Company Number: 2009AC000475

PATIENT
  Age: 86 Year
  Sex: Female

DRUGS (14)
  1. DIGOXIN [Suspect]
     Dosage: 125 MCG; PO
     Route: 048
     Dates: start: 20060425
  2. ECOTRIN [Concomitant]
  3. DIPYRIDAMOLE [Concomitant]
  4. LISINOPRIL [Concomitant]
  5. HYDROCHLOROTHIAZIDE [Concomitant]
  6. LORATADINE [Concomitant]
  7. CEPHALEXIN [Concomitant]
  8. WARFARIN SODIUM [Concomitant]
  9. ZOCOR [Concomitant]
  10. AZITHROMYCIN [Concomitant]
  11. METOPROLOL [Concomitant]
  12. SIMVASTATIN [Concomitant]
  13. ZESTRIL [Concomitant]
  14. LOPRESSOR [Concomitant]

REACTIONS (1)
  - BACK PAIN [None]
